FAERS Safety Report 10035319 (Version 1)
Quarter: 2014Q1

REPORT INFORMATION
  Report Type: Spontaneous
  Country: CN (occurrence: None)
  Receive Date: 20140321
  Receipt Date: 20140321
  Transmission Date: 20141002
  Serious: Yes (Other)
  Sender: FDA-Public Use
  Company Number: 2014CN00252

PATIENT
  Age: 44 Year
  Sex: Female

DRUGS (5)
  1. EPIRUBICIN [Suspect]
     Indication: B-CELL LYMPHOMA
  2. RITUXIMAB (RITUXIMAB) [Suspect]
     Indication: B-CELL LYMPHOMA
  3. CYCLOPHOSPHAMIDE (CYCLOPHOSPHAMIDE) [Suspect]
     Indication: B-CELL LYMPHOMA
  4. VINCRISTINE (VINCRISTINE) [Suspect]
     Indication: B-CELL LYMPHOMA
  5. PREDNISONE (PREDNISONE) [Suspect]
     Indication: B-CELL LYMPHOMA

REACTIONS (2)
  - Hepatic failure [None]
  - Hepatitis B [None]
